FAERS Safety Report 6021368-9 (Version None)
Quarter: 2008Q4

REPORT INFORMATION
  Report Type: 
  Country: None (occurrence: None)
  Receive Date: 20081229
  Receipt Date: 20081222
  Transmission Date: 20090506
  Serious: Yes (Hospitalization)
  Sender: FDA-Public Use
  Company Number: B0548036A

PATIENT
  Age: 65 Year
  Sex: Female
  Weight: 53 kg

DRUGS (3)
  1. VALTREX [Suspect]
     Indication: HERPES ZOSTER
     Dosage: 1000MG TWICE PER DAY
     Route: 048
     Dates: start: 20081123, end: 20081125
  2. VIDARABINE [Concomitant]
     Route: 065
     Dates: start: 20081125
  3. VALTREX [Concomitant]
     Indication: PRE-EXISTING DISEASE
     Dosage: 250MG PER DAY
     Route: 065
     Dates: start: 20081128, end: 20081130

REACTIONS (6)
  - DYSARTHRIA [None]
  - GAIT DISTURBANCE [None]
  - NERVOUS SYSTEM DISORDER [None]
  - OVERDOSE [None]
  - TINNITUS [None]
  - VERTIGO [None]
